FAERS Safety Report 7797105-4 (Version None)
Quarter: 2011Q4

REPORT INFORMATION
  Report Type: 
  Country: None (occurrence: None)
  Receive Date: 20111003
  Receipt Date: 20110922
  Transmission Date: 20120403
  Serious: Yes (Life-Threatening, Hospitalization)
  Sender: FDA-Public Use
  Company Number: 2011MA014266

PATIENT
  Age: 69 Year
  Sex: Female

DRUGS (6)
  1. FLUOXETINE [Suspect]
     Indication: DEPRESSION
     Dosage: 20 MG
  2. IMIPRAMINE [Concomitant]
  3. TOLTERODINE TARTRATE [Concomitant]
  4. NAPROXEN [Suspect]
     Indication: ARTHRITIS
     Dosage: 500 MG; PO
     Route: 048
     Dates: start: 19971224, end: 20110905
  5. ACETAMINOPHEN AND CODEINE PHOSPHATE [Concomitant]
  6. LEVOTHYROXINE SODIUM [Concomitant]

REACTIONS (3)
  - GASTRIC ULCER [None]
  - UPPER GASTROINTESTINAL HAEMORRHAGE [None]
  - HAEMOGLOBIN DECREASED [None]
